FAERS Safety Report 20166475 (Version 1)
Quarter: 2021Q4

REPORT INFORMATION
  Report Type: Spontaneous
  Country: US (occurrence: None)
  Receive Date: 20211208
  Receipt Date: 20211208
  Transmission Date: 20220303
  Serious: Yes (Hospitalization)
  Sender: FDA-Public Use
  Company Number: None

PATIENT
  Sex: Female

DRUGS (7)
  1. GLATIRAMER [Suspect]
     Active Substance: GLATIRAMER
     Indication: Multiple sclerosis
     Dosage: OTHER FREQUENCY : Q MON, WED, FRI;?
     Route: 058
     Dates: start: 20200512
  2. BACLOFEN [Concomitant]
     Active Substance: BACLOFEN
  3. DORZOL/TIMOL SOL [Concomitant]
  4. HYDROCHLOROTHIAZIDE [Concomitant]
     Active Substance: HYDROCHLOROTHIAZIDE
  5. LATANOPROST [Concomitant]
     Active Substance: LATANOPROST
  6. MODAFINIL [Concomitant]
     Active Substance: MODAFINIL
  7. MYRBETRIQ [Concomitant]
     Active Substance: MIRABEGRON

REACTIONS (1)
  - Post procedural infection [None]
